FAERS Safety Report 9026023 (Version 2)
Quarter: 2013Q1

REPORT INFORMATION
  Report Type: Report from Study
  Country: IT (occurrence: IT)
  Receive Date: 20130122
  Receipt Date: 20130123
  Transmission Date: 20140127
  Serious: Yes (Hospitalization)
  Sender: FDA-Public Use
  Company Number: PHHO2013IT000912

PATIENT
  Age: 58 Year
  Sex: Female
  Weight: 87 kg

DRUGS (6)
  1. EVEROLIMUS [Suspect]
     Indication: HEART TRANSPLANT
     Dosage: 0.50, BID
     Route: 048
  2. NEORAL [Suspect]
     Indication: HEART TRANSPLANT
  3. STEROIDS NOS [Suspect]
     Indication: HEART TRANSPLANT
  4. INSULIN [Concomitant]
  5. DIURETICS [Concomitant]
  6. ASPIRIN [Concomitant]

REACTIONS (1)
  - Spinal compression fracture [Recovered/Resolved with Sequelae]
